FAERS Safety Report 17053190 (Version 6)
Quarter: 2022Q2

REPORT INFORMATION
  Report Type: Spontaneous
  Country: US (occurrence: US)
  Receive Date: 20191120
  Receipt Date: 20220502
  Transmission Date: 20220721
  Serious: No
  Sender: FDA-Public Use
  Company Number: US-PFIZER INC-2018524747

PATIENT
  Age: 74 Year
  Sex: Male

DRUGS (5)
  1. LYRICA [Suspect]
     Active Substance: PREGABALIN
     Indication: Spinal osteoarthritis
     Dosage: 150 MG, 2X/DAY
     Route: 048
  2. LYRICA [Suspect]
     Active Substance: PREGABALIN
     Indication: Radiculopathy
     Dosage: 150 MG, 2X/DAY
     Dates: start: 20191119
  3. LYRICA [Suspect]
     Active Substance: PREGABALIN
     Indication: Neuropathy peripheral
  4. LYRICA [Suspect]
     Active Substance: PREGABALIN
     Indication: Burning feet syndrome
  5. LYRICA [Suspect]
     Active Substance: PREGABALIN
     Indication: Pain

REACTIONS (4)
  - Intentional product misuse [Unknown]
  - Memory impairment [Unknown]
  - Illness [Unknown]
  - Pain in extremity [Unknown]
